FAERS Safety Report 22520786 (Version 1)
Quarter: 2023Q2

REPORT INFORMATION
  Report Type: Spontaneous
  Country: JP (occurrence: JP)
  Receive Date: 20230605
  Receipt Date: 20230605
  Transmission Date: 20230721
  Serious: Yes (Death, Other)
  Sender: FDA-Public Use
  Company Number: JP-PFIZER INC-PV202300098871

PATIENT
  Age: 69 Year
  Sex: Male

DRUGS (1)
  1. FOSPHENYTOIN SODIUM [Suspect]
     Active Substance: FOSPHENYTOIN SODIUM
     Indication: Status epilepticus
     Dosage: UNK
     Route: 042

REACTIONS (2)
  - Death [Fatal]
  - Therapeutic product effect incomplete [Unknown]
